FAERS Safety Report 6641370-3 (Version None)
Quarter: 2010Q1

REPORT INFORMATION
  Report Type: 
  Country: None (occurrence: None)
  Receive Date: 20100318
  Receipt Date: 20100309
  Transmission Date: 20100710
  Serious: Yes (Congenital Anomaly, Other)
  Sender: FDA-Public Use
  Company Number: US-AMGEN-QUU398531

PATIENT
  Sex: Female

DRUGS (3)
  1. ENBREL [Suspect]
     Indication: RHEUMATOID ARTHRITIS
     Route: 058
     Dates: start: 19990301
  2. METHOTREXATE [Concomitant]
     Route: 048
  3. COUMADIN [Concomitant]

REACTIONS (7)
  - CONTUSION [None]
  - FACTOR V LEIDEN MUTATION [None]
  - FELTY'S SYNDROME [None]
  - INJECTION SITE ERYTHEMA [None]
  - INJECTION SITE PAIN [None]
  - LYMPHOMA [None]
  - THROMBOSIS [None]
